FAERS Safety Report 5369800-8 (Version None)
Quarter: 2007Q2

REPORT INFORMATION
  Report Type: 
  Country: None (occurrence: None)
  Receive Date: 20070620
  Receipt Date: 20070611
  Transmission Date: 20071010
  Serious: Yes (Other)
  Sender: FDA-Public Use
  Company Number: 2007323968

PATIENT
  Age: 65 Year
  Sex: Male
  Weight: 93.441 kg

DRUGS (4)
  1. ROGAINE [Suspect]
     Indication: ALOPECIA
     Dosage: RECOMMENDED AMOUNT TWICE A DAY (2 IN 1 D); TOPICAL
     Route: 061
     Dates: start: 20061101, end: 20070501
  2. NEXIUM [Concomitant]
  3. COUMADIN [Concomitant]
  4. HYTRIN [Concomitant]

REACTIONS (1)
  - BLOOD PRESSURE INCREASED [None]
